FAERS Safety Report 4365619-5 (Version None)
Quarter: 2004Q2

REPORT INFORMATION
  Report Type: 
  Country: None (occurrence: None)
  Receive Date: 20040520
  Receipt Date: 20040507
  Transmission Date: 20050107
  Serious: Yes (Hospitalization)
  Sender: FDA-Public Use
  Company Number: US-JNJFOC-20040302761

PATIENT
  Age: 45 Year
  Sex: Female

DRUGS (20)
  1. RISPERDAL [Suspect]
     Indication: SCHIZOAFFECTIVE DISORDER
     Dosage: 0.5 MG, ORAL
     Route: 048
  2. CLOZAPINE [Suspect]
     Indication: SCHIZOAFFECTIVE DISORDER
     Dosage: 125 MG, 2 IN 1 DAY, ORAL
     Route: 048
     Dates: start: 20040101
  3. CELEXA [Concomitant]
  4. IBUPROFEN [Concomitant]
  5. NORVASC [Concomitant]
  6. PREVACID [Concomitant]
  7. SPIRONOLACTONE [Concomitant]
  8. DETROL LA (TOLTERODINE L-TARTRATE) [Concomitant]
  9. DEMODEX (TORASEMIDE) [Concomitant]
  10. THEOPHYLLINE [Concomitant]
  11. SINGULAIR [Concomitant]
  12. QUININE SULFATE (QUININE SULFATE) [Concomitant]
  13. TRAZODONE HCL [Concomitant]
  14. VALPROIC ACID [Concomitant]
  15. FLOVENT [Concomitant]
  16. TYLENOL [Concomitant]
  17. VISTARIL [Concomitant]
  18. GUAIFENESIN (GUAIFENESIN) [Concomitant]
  19. DUONEB (MEDIHALER-DUO) [Concomitant]
  20. ALBUTEROL [Concomitant]

REACTIONS (16)
  - ABDOMINAL PAIN [None]
  - BLOOD ALKALINE PHOSPHATASE INCREASED [None]
  - BLOOD CHLORIDE DECREASED [None]
  - BLOOD GLUCOSE INCREASED [None]
  - C-REACTIVE PROTEIN INCREASED [None]
  - CHILLS [None]
  - HEPATOMEGALY [None]
  - HERNIA [None]
  - HYPERHIDROSIS [None]
  - LEUKOCYTOSIS [None]
  - LUNG INFECTION [None]
  - NEUROLEPTIC MALIGNANT SYNDROME [None]
  - PYREXIA [None]
  - RED BLOOD CELL SEDIMENTATION RATE INCREASED [None]
  - URINARY TRACT INFECTION [None]
  - VOMITING [None]
